FAERS Safety Report 23490215 (Version 1)
Quarter: 2024Q1

REPORT INFORMATION
  Report Type: Spontaneous
  Country: US (occurrence: None)
  Receive Date: 20240206
  Receipt Date: 20240206
  Transmission Date: 20240410
  Serious: No
  Sender: FDA-Public Use
  Company Number: US-ROCHE-3478960

PATIENT
  Age: 68 Year
  Sex: Female

DRUGS (2)
  1. XOLAIR [Suspect]
     Active Substance: OMALIZUMAB
     Indication: Product used for unknown indication
     Route: 042
     Dates: start: 202105
  2. MENOSTAR [Concomitant]
     Active Substance: ESTRADIOL
     Indication: Osteoporosis

REACTIONS (3)
  - Syringe issue [Unknown]
  - Underdose [Unknown]
  - No adverse event [Unknown]
